FAERS Safety Report 24551904 (Version 1)
Quarter: 2024Q4

REPORT INFORMATION
  Report Type: Spontaneous
  Country: US (occurrence: US)
  Receive Date: 20241026
  Receipt Date: 20241026
  Transmission Date: 20250115
  Serious: Yes (Other)
  Sender: ALEXION PHARMACEUTICALS
  Company Number: US-AstraZeneca-CH-00723245A

PATIENT

DRUGS (6)
  1. IMFINZI [Suspect]
     Active Substance: DURVALUMAB
     Dosage: UNK
  2. IMFINZI [Suspect]
     Active Substance: DURVALUMAB
     Dosage: UNK
  3. IMFINZI [Suspect]
     Active Substance: DURVALUMAB
     Dosage: UNK
  4. IMFINZI [Suspect]
     Active Substance: DURVALUMAB
     Dosage: UNK
  5. TRIAMCINOLONE DIACETATE [Concomitant]
     Active Substance: TRIAMCINOLONE DIACETATE
     Dosage: UNK
  6. TRIAMCINOLONE DIACETATE [Concomitant]
     Active Substance: TRIAMCINOLONE DIACETATE
     Dosage: UNK
     Route: 065

REACTIONS (1)
  - Lichen planus [Unknown]
